FAERS Safety Report 13554656 (Version 3)
Quarter: 2017Q3

REPORT INFORMATION
  Report Type: Report from Study
  Country: US (occurrence: US)
  Receive Date: 20170517
  Receipt Date: 20170901
  Transmission Date: 20171127
  Serious: No
  Sender: FDA-Public Use
  Company Number: GXBR2017US001628

PATIENT
  Age: 28 Year
  Sex: Female
  Weight: 54.42 kg

DRUGS (3)
  1. GLATOPA [Suspect]
     Active Substance: GLATIRAMER ACETATE
     Dosage: 20 MG, QD
     Route: 058
     Dates: start: 20170314
  2. VITAMIN D [Concomitant]
     Active Substance: CHOLECALCIFEROL
     Indication: PRODUCT USED FOR UNKNOWN INDICATION
     Route: 065
  3. GLATOPA [Suspect]
     Active Substance: GLATIRAMER ACETATE
     Indication: MULTIPLE SCLEROSIS
     Dosage: 20 MG, QD ROTATES SITES
     Route: 058
     Dates: start: 20170312

REACTIONS (11)
  - Feeling hot [Recovering/Resolving]
  - Dizziness [Recovering/Resolving]
  - Dyspnoea [Recovering/Resolving]
  - Incorrect dose administered by device [Not Recovered/Not Resolved]
  - Erythema [Recovering/Resolving]
  - Hyperhidrosis [Recovering/Resolving]
  - Wrong technique in device usage process [Unknown]
  - Lacrimation increased [Recovering/Resolving]
  - Injection site haemorrhage [Not Recovered/Not Resolved]
  - Back pain [Recovered/Resolved]
  - Flushing [Not Recovered/Not Resolved]

NARRATIVE: CASE EVENT DATE: 20170505
